FAERS Safety Report 8149369-5 (Version None)
Quarter: 2012Q1

REPORT INFORMATION
  Report Type: 
  Country: None (occurrence: None)
  Receive Date: 20120218
  Receipt Date: 20111005
  Transmission Date: 20120608
  Serious: No
  Sender: FDA-Public Use
  Company Number: US-ALLERGAN-1113164US

PATIENT
  Sex: Female

DRUGS (2)
  1. DIGESTIVE ENZYMES [Concomitant]
     Dosage: UNK
  2. BOTOX COSMETIC [Suspect]
     Indication: SKIN WRINKLING
     Dosage: '5 LITTLE INJECTIONS'
     Route: 030
     Dates: start: 20110416, end: 20110416

REACTIONS (3)
  - ALOPECIA [None]
  - DRY EYE [None]
  - DRY MOUTH [None]
